FAERS Safety Report 5102438-6 (Version None)
Quarter: 2006Q3

REPORT INFORMATION
  Report Type: 
  Country: None (occurrence: None)
  Receive Date: 20060731
  Receipt Date: 20060524
  Transmission Date: 20061208
  Serious: No
  Sender: FDA-Public Use
  Company Number: 2006PV014451

PATIENT
  Age: 71 Year
  Sex: Male
  Weight: 102.5129 kg

DRUGS (11)
  1. BYETTA [Suspect]
     Indication: DIABETES MELLITUS NON-INSULIN-DEPENDENT
     Dosage: SEE IMAGE
     Route: 058
     Dates: start: 20060401, end: 20060422
  2. BYETTA [Suspect]
     Indication: DIABETES MELLITUS NON-INSULIN-DEPENDENT
     Dosage: SEE IMAGE
     Route: 058
     Dates: start: 20060401, end: 20060509
  3. BYETTA [Suspect]
     Indication: DIABETES MELLITUS NON-INSULIN-DEPENDENT
     Dosage: SEE IMAGE
     Route: 058
     Dates: start: 20060423
  4. BYETTA [Suspect]
  5. METFORMIN ER [Concomitant]
  6. GLUCOTROL XL [Concomitant]
  7. LANTUS [Concomitant]
  8. ALLEGRA [Concomitant]
  9. ARICEPT [Concomitant]
  10. SINGULAIR [Concomitant]
  11. BETAMETHASONE DIPROPIONATE OINTMENT [Concomitant]

REACTIONS (3)
  - DIARRHOEA [None]
  - RASH [None]
  - WEIGHT DECREASED [None]
